FAERS Safety Report 8893959 (Version 2)
Quarter: 2012Q4

REPORT INFORMATION
  Report Type: 
  Country: CN (occurrence: CN)
  Receive Date: 20121108
  Receipt Date: 20121112
  Transmission Date: 20130627
  Serious: Yes (Other)
  Sender: FDA-Public Use
  Company Number: CN-JNJFOC-20121102901

PATIENT
  Age: 11 Month
  Sex: Female
  Weight: 8 kg

DRUGS (3)
  1. CHILDREN^S MOTRIN [Suspect]
     Route: 048
  2. CHILDREN^S MOTRIN [Suspect]
     Indication: PYREXIA
     Dosage: 1.5ml
     Route: 048
     Dates: start: 20121101, end: 20121101
  3. CHINESE MEDICATION [Suspect]
     Indication: PYREXIA
     Route: 048

REACTIONS (2)
  - Vomiting [Recovered/Resolved]
  - Diarrhoea [Recovered/Resolved]
